FAERS Safety Report 6346750-1 (Version None)
Quarter: 2009Q3

REPORT INFORMATION
  Report Type: 
  Country: None (occurrence: None)
  Receive Date: 20090904
  Receipt Date: 20090831
  Transmission Date: 20100115
  Serious: Yes (Other)
  Sender: FDA-Public Use
  Company Number: CERZ-1000897

PATIENT
  Age: 18 Year
  Sex: Male
  Weight: 60 kg

DRUGS (1)
  1. CEREZYME [Suspect]
     Indication: GAUCHER'S DISEASE
     Dosage: 1600 U, Q4W, INTRAVENOUS
     Route: 042
     Dates: start: 20020408

REACTIONS (3)
  - BONE CYST [None]
  - OSTEOPOROSIS [None]
  - PATHOLOGICAL FRACTURE [None]
